FAERS Safety Report 13085341 (Version 1)
Quarter: 2017Q1

REPORT INFORMATION
  Report Type: Spontaneous
  Country: CH (occurrence: CH)
  Receive Date: 20170104
  Receipt Date: 20170104
  Transmission Date: 20170428
  Serious: Yes (Life-Threatening, Hospitalization)
  Sender: FDA-Public Use
  Company Number: CH-BAYER-2016-245147

PATIENT
  Age: 64 Year
  Sex: Male
  Weight: 74.97 kg

DRUGS (6)
  1. SIMVASTATIN. [Concomitant]
     Active Substance: SIMVASTATIN
     Route: 048
  2. PERINDOPRIL [Concomitant]
     Active Substance: PERINDOPRIL
     Route: 048
  3. PANTOZOL [Concomitant]
     Active Substance: PANTOPRAZOLE SODIUM
     Dosage: 40 MG, QD
     Route: 048
  4. ASPIRIN CARDIO 100 MG [Suspect]
     Active Substance: ASPIRIN
     Route: 048
  5. SINTROM [Suspect]
     Active Substance: ACENOCOUMAROL
     Indication: HYPERCOAGULATION
     Dosage: 1 DF, UNK
     Route: 048
     Dates: start: 2012, end: 20161213
  6. LASIX [Concomitant]
     Active Substance: FUROSEMIDE
     Route: 048

REACTIONS (3)
  - Shock haemorrhagic [Not Recovered/Not Resolved]
  - Upper gastrointestinal haemorrhage [Not Recovered/Not Resolved]
  - International normalised ratio increased [Not Recovered/Not Resolved]

NARRATIVE: CASE EVENT DATE: 20161213
